FAERS Safety Report 15450974 (Version 1)
Quarter: 2018Q4

REPORT INFORMATION
  Report Type: Report from Study
  Country: None (occurrence: US)
  Receive Date: 20181001
  Receipt Date: 20181001
  Transmission Date: 20190204
  Serious: Yes (Death)
  Sender: FDA-Public Use
  Company Number: US-ABBVIE-18S-163-2504443-00

PATIENT
  Age: 64 Year

DRUGS (1)
  1. DUOPA [Suspect]
     Active Substance: CARBIDOPA\LEVODOPA
     Indication: PARKINSON^S DISEASE
     Route: 050

REACTIONS (1)
  - Death [Fatal]

NARRATIVE: CASE EVENT DATE: 20180912
